FAERS Safety Report 9154957 (Version 1)
Quarter: 2013Q1

REPORT INFORMATION
  Report Type: Spontaneous
  Country: US (occurrence: US)
  Receive Date: 20130311
  Receipt Date: 20130311
  Transmission Date: 20140127
  Serious: No
  Sender: FDA-Public Use
  Company Number: US-ABBOTT-12P-163-0952553-00

PATIENT
  Sex: Female
  Weight: 61.29 kg

DRUGS (2)
  1. LUPRON DEPOT 11.25 MG [Suspect]
     Indication: UTERINE LEIOMYOMA
     Dates: start: 2010, end: 201112
  2. UNKNOWN EYE DROPS [Concomitant]
     Indication: GLAUCOMA
     Route: 047

REACTIONS (4)
  - Vision blurred [Unknown]
  - Hot flush [Unknown]
  - Hypertrichosis [Unknown]
  - Hot flush [Unknown]
